FAERS Safety Report 21879544 (Version 4)
Quarter: 2023Q1

REPORT INFORMATION
  Report Type: Spontaneous
  Country: US (occurrence: US)
  Receive Date: 20230118
  Receipt Date: 20230323
  Transmission Date: 20230418
  Serious: No
  Sender: FDA-Public Use
  Company Number: US-AMGEN-USASP2023001398

PATIENT
  Sex: Female

DRUGS (2)
  1. PROLIA [Suspect]
     Active Substance: DENOSUMAB
     Indication: Osteoporosis
     Dosage: 60 MILLIGRAM, Q6MO
     Route: 030
  2. PROLIA [Suspect]
     Active Substance: DENOSUMAB
     Dosage: 60 UNK
     Route: 058

REACTIONS (16)
  - Injection site rash [Unknown]
  - Skin burning sensation [Not Recovered/Not Resolved]
  - Tongue discomfort [Not Recovered/Not Resolved]
  - Bone density abnormal [Unknown]
  - Toothache [Not Recovered/Not Resolved]
  - Malaise [Not Recovered/Not Resolved]
  - Fibromyalgia [Unknown]
  - Off label use [Unknown]
  - Injection site erythema [Unknown]
  - Injection site pruritus [Unknown]
  - Injection site discomfort [Not Recovered/Not Resolved]
  - Injection site pain [Unknown]
  - Hypoaesthesia [Not Recovered/Not Resolved]
  - Blood pressure increased [Not Recovered/Not Resolved]
  - Paraesthesia [Not Recovered/Not Resolved]
  - Pain in extremity [Not Recovered/Not Resolved]
